FAERS Safety Report 4653307-7 (Version None)
Quarter: 2005Q2

REPORT INFORMATION
  Report Type: 
  Country: None (occurrence: None)
  Receive Date: 20050505
  Receipt Date: 20050309
  Transmission Date: 20051028
  Serious: Yes (Hospitalization)
  Sender: FDA-Public Use
  Company Number: FR-BRISTOL-MYERS SQUIBB COMPANY-12892386

PATIENT
  Age: 36 Year
  Sex: Male

DRUGS (6)
  1. REYATAZ [Suspect]
     Indication: HIV INFECTION
     Route: 048
     Dates: start: 20040429, end: 20041208
  2. ZIAGEN [Suspect]
     Indication: HIV INFECTION
     Dates: start: 20040429, end: 20041208
  3. VIREAD [Suspect]
     Indication: HIV INFECTION
     Dates: start: 20030615, end: 20041208
  4. NORVIR [Concomitant]
     Indication: HIV INFECTION
     Dates: start: 20040915, end: 20041208
  5. DEPAKENE [Concomitant]
     Dates: start: 20030515
  6. KALETRA [Concomitant]
     Dates: start: 20040401

REACTIONS (1)
  - PANCREATITIS [None]
